FAERS Safety Report 10334253 (Version 1)
Quarter: 2014Q3

REPORT INFORMATION
  Report Type: Spontaneous
  Country: US (occurrence: None)
  Receive Date: 20140721
  Receipt Date: 20140721
  Transmission Date: 20150326
  Serious: Yes (Hospitalization)
  Sender: FDA-Public Use
  Company Number: None

PATIENT
  Age: 25 Year
  Sex: Female
  Weight: 65.77 kg

DRUGS (1)
  1. METRONIDAZOLE. [Suspect]
     Active Substance: METRONIDAZOLE
     Indication: BACTERIAL VAGINOSIS
     Dosage: ONE PILL TWICE DAILY TAKEN BY MOUTH
     Route: 048
     Dates: start: 20140714, end: 20140716

REACTIONS (20)
  - Dizziness [None]
  - Mental impairment [None]
  - Confusional state [None]
  - Feeling abnormal [None]
  - Balance disorder [None]
  - Hearing impaired [None]
  - Pain [None]
  - Headache [None]
  - Insomnia [None]
  - Asthenia [None]
  - Disorientation [None]
  - Hypoaesthesia [None]
  - Cognitive disorder [None]
  - Nausea [None]
  - Visual impairment [None]
  - Memory impairment [None]
  - Paraesthesia [None]
  - Burning sensation [None]
  - Fatigue [None]
  - Muscular weakness [None]

NARRATIVE: CASE EVENT DATE: 20140716
